FAERS Safety Report 12597130 (Version 1)
Quarter: 2016Q3

REPORT INFORMATION
  Report Type: Spontaneous
  Country: DK (occurrence: IT)
  Receive Date: 20160726
  Receipt Date: 20160726
  Transmission Date: 20161109
  Serious: Yes (Other)
  Sender: FDA-Public Use
  Company Number: IT-FRI-1000086349

PATIENT
  Age: 25 Year
  Sex: Female

DRUGS (6)
  1. ZOLPIDEM [Suspect]
     Active Substance: ZOLPIDEM\ZOLPIDEM TARTRATE
     Indication: DEPRESSION
     Route: 048
     Dates: start: 20150404, end: 20150404
  2. MIRTAZAPINE. [Suspect]
     Active Substance: MIRTAZAPINE
     Indication: DEPRESSION
     Route: 048
     Dates: start: 20150404, end: 20150404
  3. ESCITALOPRAM [Suspect]
     Active Substance: ESCITALOPRAM OXALATE
     Indication: DEPRESSION
     Route: 048
     Dates: start: 20150404, end: 20150404
  4. SAMYR 400MG COMPRESSE GASTRORESISTENTI [Suspect]
     Active Substance: ADEMETIONINE
     Indication: DEPRESSION
     Route: 048
     Dates: start: 20150404, end: 20150404
  5. SERTRALINE [Suspect]
     Active Substance: SERTRALINE HYDROCHLORIDE
     Indication: DEPRESSION
     Route: 048
     Dates: start: 20150404, end: 20150404
  6. MIRTAZAPINE. [Suspect]
     Active Substance: MIRTAZAPINE
     Indication: DEPRESSION
     Route: 048
     Dates: start: 20150404, end: 20150404

REACTIONS (2)
  - Drug abuse [Recovering/Resolving]
  - Sopor [Unknown]

NARRATIVE: CASE EVENT DATE: 20150404
